FAERS Safety Report 17921117 (Version 1)
Quarter: 2020Q2

REPORT INFORMATION
  Report Type: Spontaneous
  Country: LU (occurrence: LU)
  Receive Date: 20200622
  Receipt Date: 20200622
  Transmission Date: 20200714
  Serious: Yes (Life-Threatening, Hospitalization, Other)
  Sender: FDA-Public Use
  Company Number: LU-STRIDES ARCOLAB LIMITED-2020SP007179

PATIENT
  Age: 18 Year
  Sex: Female

DRUGS (3)
  1. PIROXICAM. [Suspect]
     Active Substance: PIROXICAM
     Indication: ANALGESIC INTERVENTION SUPPORTIVE THERAPY
     Dosage: 1 DOSAGE FORM (20 MG/3 ML), TOTAL
  2. METAMIZOLE [Suspect]
     Active Substance: METAMIZOLE
     Indication: ANALGESIC INTERVENTION SUPPORTIVE THERAPY
     Dosage: 1 DOSAGE FORM, TOTAL
  3. LIDOCAINE. [Suspect]
     Active Substance: LIDOCAINE
     Indication: LOCAL ANAESTHESIA
     Dosage: 1 DOSAGE FORM (30 MG/3 ML), TOTAL

REACTIONS (12)
  - Hypoacusis [Recovered/Resolved]
  - Vertigo [Recovered/Resolved]
  - Nausea [Recovered/Resolved]
  - Asthenia [Recovered/Resolved]
  - Central nervous system lesion [Recovered/Resolved]
  - Hypotonia [Recovered/Resolved]
  - Dysphagia [Recovered/Resolved]
  - Cerebellar syndrome [Recovered/Resolved]
  - Hypoaesthesia [Recovered/Resolved]
  - Vomiting [Recovered/Resolved]
  - Toxicity to various agents [Unknown]
  - Posture abnormal [Recovered/Resolved]
